FAERS Safety Report 4303181-3 (Version None)
Quarter: 2004Q1

REPORT INFORMATION
  Report Type: 
  Country: None (occurrence: None)
  Receive Date: 20040224
  Receipt Date: 20040129
  Transmission Date: 20041129
  Serious: Yes (Other)
  Sender: FDA-Public Use
  Company Number: PHEH2004US01321

PATIENT
  Age: 14 Year
  Sex: Male

DRUGS (2)
  1. EXELON [Suspect]
     Dosage: 6 MG, QD
     Dates: start: 20040101, end: 20040124
  2. EXELON [Suspect]
     Dosage: 6 MG, BID
     Dates: start: 20040125, end: 20040128

REACTIONS (4)
  - GAZE PALSY [None]
  - GLARE [None]
  - MUSCULAR WEAKNESS [None]
  - RESPIRATORY DISTRESS [None]
